FAERS Safety Report 11216852 (Version 1)
Quarter: 2015Q2

REPORT INFORMATION
  Report Type: Spontaneous
  Country: US (occurrence: None)
  Receive Date: 20150623
  Receipt Date: 20150623
  Transmission Date: 20150821
  Serious: No
  Sender: FDA-Public Use
  Company Number: None

PATIENT
  Age: 64 Year
  Sex: Female
  Weight: 86.18 kg

DRUGS (8)
  1. PREVACID [Suspect]
     Active Substance: LANSOPRAZOLE
     Indication: GALLBLADDER OPERATION
     Dosage: 1 PILL
     Route: 048
     Dates: start: 20150301, end: 20150621
  2. LISINOPRIL. [Concomitant]
     Active Substance: LISINOPRIL
  3. CALCIUM W/VITAMIN D [Concomitant]
     Active Substance: CALCIUM\VITAMIN D
  4. CLARITIN [Concomitant]
     Active Substance: LORATADINE
  5. PREVACID [Suspect]
     Active Substance: LANSOPRAZOLE
     Indication: POST PROCEDURAL COMPLICATION
     Dosage: 1 PILL
     Route: 048
     Dates: start: 20150301, end: 20150621
  6. FLONASE [Concomitant]
     Active Substance: FLUTICASONE PROPIONATE
  7. PREVACID [Suspect]
     Active Substance: LANSOPRAZOLE
     Indication: GASTROOESOPHAGEAL REFLUX DISEASE
     Dosage: 1 PILL
     Route: 048
     Dates: start: 20150301, end: 20150621
  8. MUCINEX DM MAXIMUM STRENGTH [Concomitant]
     Active Substance: DEXTROMETHORPHAN HYDROBROMIDE\GUAIFENESIN

REACTIONS (7)
  - Disease recurrence [None]
  - Product substitution issue [None]
  - Gastrooesophageal reflux disease [None]
  - Product quality issue [None]
  - Feeling abnormal [None]
  - Gastric disorder [None]
  - Drug ineffective [None]

NARRATIVE: CASE EVENT DATE: 20150301
